FAERS Safety Report 8420071-5 (Version None)
Quarter: 2012Q2

REPORT INFORMATION
  Report Type: 
  Country: None (occurrence: None)
  Receive Date: 20120607
  Receipt Date: 20120529
  Transmission Date: 20120825
  Serious: Yes (Hospitalization, Other)
  Sender: FDA-Public Use
  Company Number: US-JNJFOC-20110801411

PATIENT
  Sex: Male
  Weight: 87.09 kg

DRUGS (13)
  1. REMICADE [Suspect]
     Route: 042
     Dates: start: 20101229
  2. REMICADE [Suspect]
     Route: 042
     Dates: start: 20110502
  3. PREDNISONE [Concomitant]
  4. PRILOSEC [Concomitant]
  5. REMICADE [Suspect]
     Dosage: 5 INFUSIONS AT 10MG/KG; A TOTAL OF 53 INFUSIONS
     Route: 042
     Dates: start: 20111201
  6. REMICADE [Suspect]
     Dosage: 48 INFUSIONS AT 5MG/KG
     Route: 042
     Dates: start: 20020531, end: 20100908
  7. REMICADE [Suspect]
     Indication: CROHN'S DISEASE
     Route: 042
     Dates: start: 20101103
  8. ANTIDEPRESSANTS [Concomitant]
  9. REMICADE [Suspect]
     Route: 042
     Dates: start: 20110223
  10. VITAMIN B-12 [Concomitant]
  11. MULTI-VITAMINS [Concomitant]
  12. NEXIUM [Concomitant]
  13. REMICADE [Suspect]
     Dosage: 5 INFUSIONS AT 10MG/KG; A TOTAL OF 53 INFUSIONS
     Route: 042
     Dates: start: 20110623

REACTIONS (3)
  - CALCULUS URETERIC [None]
  - CHONDROSARCOMA [None]
  - STAG HORN CALCULUS [None]
